FAERS Safety Report 14685934 (Version 1)
Quarter: 2018Q1

REPORT INFORMATION
  Report Type: Spontaneous
  Country: US (occurrence: US)
  Receive Date: 20180326
  Receipt Date: 20180326
  Transmission Date: 20180509
  Serious: Yes (Hospitalization, Disabling)
  Sender: FDA-Public Use
  Company Number: None

PATIENT
  Age: 67 Year
  Sex: Female
  Weight: 67.5 kg

DRUGS (20)
  1. AMINO ACIDS [Concomitant]
     Active Substance: AMINO ACIDS
  2. VITAMIN E [Concomitant]
     Active Substance: .ALPHA.-TOCOPHEROL
  3. LEVAQUIN [Suspect]
     Active Substance: LEVOFLOXACIN
  4. CIPRO [Suspect]
     Active Substance: CIPROFLOXACIN HYDROCHLORIDE
  5. VITAMIN C [Concomitant]
     Active Substance: ASCORBIC ACID
  6. MELATONIN [Concomitant]
     Active Substance: MELATONIN
  7. TYRPTOPHAN [Concomitant]
  8. MULTIVITAMINS [Concomitant]
     Active Substance: VITAMINS
  9. L THEANINE [Concomitant]
  10. SELENIUM [Concomitant]
     Active Substance: SELENIUM
  11. LEVOTHYROXINE. [Concomitant]
     Active Substance: LEVOTHYROXINE
  12. CALCIUM SUPPLEMENT [Concomitant]
     Active Substance: CALCIUM
  13. B VITAMINS [Concomitant]
     Active Substance: CYANOCOBALAMIN\DEXPANTHENOL\NIACINAMIDE\PYRIDOXINE HYDROCHLORIDE\RIBOFLAVIN 5^-PHOSPHATE SODIUM\THIAMINE HYDROCHLORIDE\VITAMIN B COMPLEX
  14. TUMERIC [Concomitant]
     Active Substance: HERBALS\TURMERIC
  15. IP-60 INOSITOL [Concomitant]
  16. ZINC. [Concomitant]
     Active Substance: ZINC
  17. CHELATED MAGNESIUM [Concomitant]
  18. GREEN TEA EXTRACT [Concomitant]
  19. GABA [Concomitant]
     Active Substance: HOMEOPATHICS
  20. VITAMIN D [Concomitant]
     Active Substance: CHOLECALCIFEROL

REACTIONS (17)
  - Sepsis [None]
  - Anal abscess [None]
  - Blood pressure increased [None]
  - Crying [None]
  - Seizure [None]
  - Headache [None]
  - Pain [None]
  - Urinary tract infection [None]
  - Asthenia [None]
  - Malaise [None]
  - Diarrhoea [None]
  - Myalgia [None]
  - Influenza [None]
  - Palpitations [None]
  - Tinnitus [None]
  - Arthralgia [None]
  - Anxiety [None]

NARRATIVE: CASE EVENT DATE: 20180326
